FAERS Safety Report 4359460-7 (Version None)
Quarter: 2004Q2

REPORT INFORMATION
  Report Type: 
  Country: None (occurrence: None)
  Receive Date: 20040512
  Receipt Date: 20040503
  Transmission Date: 20050107
  Serious: Yes (Hospitalization)
  Sender: FDA-Public Use
  Company Number: US-JNJFOC-20040403404

PATIENT
  Age: 37 Year
  Sex: Female

DRUGS (5)
  1. DURAGESIC [Suspect]
     Indication: PAIN
     Dosage: 75 UG/HR, 1 IN 72 HOUR; 50 UG/HR, 1 IN 72 HOUR TRANSDERMAL
     Route: 062
     Dates: start: 20040130, end: 20040205
  2. DURAGESIC [Suspect]
     Indication: PAIN
     Dosage: 75 UG/HR, 1 IN 72 HOUR; 50 UG/HR, 1 IN 72 HOUR TRANSDERMAL
     Route: 062
     Dates: start: 20040206, end: 20040226
  3. DURAGESIC [Suspect]
     Indication: PAIN
     Dosage: 75 UG/HR, 1 IN 72 HOUR; 50 UG/HR, 1 IN 72 HOUR TRANSDERMAL
     Route: 062
     Dates: start: 20040227, end: 20040406
  4. MORPHINE (MORPHINE) TABLETS [Concomitant]
  5. VICODIN (VICODIN) TABLETS [Concomitant]

REACTIONS (12)
  - APPLICATION SITE SCAR [None]
  - DRUG DEPENDENCE [None]
  - DRUG EFFECT DECREASED [None]
  - HEADACHE [None]
  - INJECTION SITE REACTION [None]
  - MULTIPLE DRUG OVERDOSE [None]
  - PANCREATITIS [None]
  - PHARMACEUTICAL PRODUCT COMPLAINT [None]
  - RASH [None]
  - SKIN BURNING SENSATION [None]
  - SKIN IRRITATION [None]
  - SUICIDE ATTEMPT [None]
